FAERS Safety Report 11969275 (Version 2)
Quarter: 2016Q3

REPORT INFORMATION
  Report Type: Report from Study
  Country: US (occurrence: US)
  Receive Date: 20160128
  Receipt Date: 20160930
  Transmission Date: 20161109
  Serious: Yes (Other)
  Sender: FDA-Public Use
  Company Number: US-AMGEN-USASL2016008635

PATIENT
  Age: 58 Year
  Sex: Female

DRUGS (1)
  1. ENBREL [Suspect]
     Active Substance: ETANERCEPT
     Indication: RHEUMATOID ARTHRITIS
     Dosage: 50 MG, QWK
     Route: 065

REACTIONS (9)
  - Gastrointestinal disorder [Unknown]
  - Sinusitis [Recovering/Resolving]
  - Injection site extravasation [Unknown]
  - Gastrooesophageal reflux disease [Not Recovered/Not Resolved]
  - Head discomfort [Recovering/Resolving]
  - Adverse event [Unknown]
  - Rotator cuff repair [Unknown]
  - Retinal migraine [Recovering/Resolving]
  - Rhinorrhoea [Not Recovered/Not Resolved]

NARRATIVE: CASE EVENT DATE: 201601
